FAERS Safety Report 10190583 (Version 1)
Quarter: 2014Q2

REPORT INFORMATION
  Report Type: Spontaneous
  Country: DK (occurrence: DK)
  Receive Date: 20140523
  Receipt Date: 20140523
  Transmission Date: 20141212
  Serious: Yes (Hospitalization, Disabling)
  Sender: FDA-Public Use
  Company Number: DK-ROCHE-1406089

PATIENT
  Age: 75 Year
  Sex: Female

DRUGS (1)
  1. MABTHERA [Suspect]
     Indication: RHEUMATOID ARTHRITIS
     Dosage: DOSIS: 1000 MG 2 GANGE PA 2 UGER. MEDICINEN GIVES STADIG.
     Route: 065
     Dates: start: 20110831

REACTIONS (1)
  - Cerebrovascular accident [Not Recovered/Not Resolved]
